FAERS Safety Report 8857726 (Version 2)
Quarter: 2012Q4

REPORT INFORMATION
  Report Type: 
  Country: PL (occurrence: PL)
  Receive Date: 20121024
  Receipt Date: 20121031
  Transmission Date: 20130627
  Serious: Yes (Other)
  Sender: FDA-Public Use
  Company Number: PL-B.I. PHARMACEUTICALS,INC./RIDGEFIELD-2012-AP-00908AP

PATIENT
  Age: 71 Year
  Sex: Female
  Weight: 87 kg

DRUGS (5)
  1. PRADAXA [Suspect]
     Indication: ATRIAL FIBRILLATION
     Dosage: 300 mg
     Route: 048
     Dates: start: 20120802, end: 20121001
  2. ATORVOX [Concomitant]
     Dosage: 20 mg
     Route: 048
     Dates: start: 2010
  3. BIOSOTAL [Concomitant]
     Dosage: 240 mg
     Route: 048
     Dates: start: 2010
  4. SPIRONOL [Concomitant]
     Dosage: 25 mg
     Route: 048
     Dates: start: 2010
  5. NOLPAZA [Concomitant]
     Dosage: 20 mg
     Route: 048
     Dates: start: 2010

REACTIONS (2)
  - Petechiae [Recovered/Resolved]
  - Dysgeusia [Recovered/Resolved]
